FAERS Safety Report 15576029 (Version 1)
Quarter: 2018Q4

REPORT INFORMATION
  Report Type: Report from Study
  Country: IT (occurrence: IT)
  Receive Date: 20181101
  Receipt Date: 20181101
  Transmission Date: 20190205
  Serious: Yes (Other)
  Sender: FDA-Public Use
  Company Number: IT-TEVA-2018-IT-971177

PATIENT
  Age: 34 Year
  Sex: Male

DRUGS (3)
  1. ZOLPIDEM TARTRATE. [Suspect]
     Active Substance: ZOLPIDEM TARTRATE
     Indication: DRUG ABUSE
     Route: 048
     Dates: start: 20180811, end: 20180811
  2. BENERVA 300 MG COMPRESSE GASTRORESISTENTI [Suspect]
     Active Substance: THIAMINE HYDROCHLORIDE
     Indication: DRUG ABUSE
     Route: 048
     Dates: start: 20180811, end: 20180811
  3. VALTRAX 5 MG + 5 MG COMPRESSE [Suspect]
     Active Substance: DIAZEPAM\ISOPROPAMIDE IODIDE
     Indication: DRUG ABUSE
     Route: 048
     Dates: start: 20180811, end: 20180811

REACTIONS (4)
  - Abdominal distension [Recovering/Resolving]
  - Drug abuse [Recovering/Resolving]
  - Hypokinesia [Recovering/Resolving]
  - Constipation [Recovering/Resolving]

NARRATIVE: CASE EVENT DATE: 20180811
